FAERS Safety Report 9348219 (Version 1)
Quarter: 2013Q2

REPORT INFORMATION
  Report Type: Spontaneous
  Country: US (occurrence: US)
  Receive Date: 20130614
  Receipt Date: 20130614
  Transmission Date: 20140414
  Serious: Yes (Hospitalization)
  Sender: FDA-Public Use
  Company Number: US-BAYER-2013-072253

PATIENT
  Age: 38 Year
  Sex: Female

DRUGS (6)
  1. YASMIN [Suspect]
  2. TOPAMAX [Concomitant]
     Dosage: 100 MG, UNK
  3. ALPRAZOLAM [Concomitant]
     Dosage: 1 MG, UNK
  4. INDERAL LA [Concomitant]
     Dosage: 80 MG, UNK
  5. ZOMIG [Concomitant]
     Dosage: 2.5 MG, UNK
  6. LAMICTAL [Concomitant]

REACTIONS (2)
  - Pulmonary embolism [None]
  - Deep vein thrombosis [None]
